FAERS Safety Report 6980151-8 (Version None)
Quarter: 2010Q3

REPORT INFORMATION
  Report Type: 
  Country: None (occurrence: None)
  Receive Date: 20100914
  Receipt Date: 20100903
  Transmission Date: 20110219
  Serious: Yes (Other)
  Sender: FDA-Public Use
  Company Number: US-JNJFOC-20100807874

PATIENT
  Sex: Female

DRUGS (3)
  1. DOXIL [Suspect]
     Indication: OVARIAN CANCER
     Route: 042
  2. GEMCITABINE HCL [Concomitant]
     Route: 065
  3. AVASTIN [Concomitant]
     Route: 065

REACTIONS (4)
  - DRY SKIN [None]
  - EPISTAXIS [None]
  - LABORATORY TEST ABNORMAL [None]
  - PAIN IN EXTREMITY [None]
